FAERS Safety Report 8970784 (Version 1)
Quarter: 2012Q4

REPORT INFORMATION
  Report Type: Report from Study
  Country: CA (occurrence: CA)
  Receive Date: 20121218
  Receipt Date: 20121218
  Transmission Date: 20130627
  Serious: Yes (Hospitalization)
  Sender: FDA-Public Use
  Company Number: CA-JNJFOC-20121203797

PATIENT
  Age: 43 Year
  Sex: Male
  Weight: 153 kg

DRUGS (5)
  1. REMICADE [Suspect]
     Indication: PSORIASIS
     Route: 042
     Dates: start: 20110406
  2. REMICADE [Suspect]
     Indication: PSORIASIS
     Dosage: 12th infusion
     Route: 042
     Dates: start: 20121010
  3. AMLODIPINE [Concomitant]
     Route: 065
  4. CYMBALTA [Concomitant]
     Route: 065
  5. GLUMETZA [Concomitant]
     Route: 065

REACTIONS (1)
  - Allergy to plants [Recovered/Resolved]
